FAERS Safety Report 9245458 (Version 1)
Quarter: 2013Q1

REPORT INFORMATION
  Report Type: Spontaneous
  Country: US (occurrence: None)
  Receive Date: 20130305
  Receipt Date: 20130305
  Transmission Date: 20140127
  Serious: Yes (Hospitalization)
  Sender: FDA-Public Use
  Company Number: 163-21880-12060090

PATIENT
  Age: 63 Year
  Sex: Female
  Weight: 181 kg

DRUGS (16)
  1. REVLIMID [Suspect]
     Indication: MYELODYSPLASTIC SYNDROME
     Route: 048
     Dates: start: 20120406, end: 20120531
  2. FISH OIL (FISH OIL) [Concomitant]
  3. AMLPODIPINE (AMLODIPINE) [Concomitant]
  4. HCTZ (HYDROCHLOROTHIAZIDE) [Concomitant]
  5. ASTELIN (AZELASTINE HYDROCHLORIDE) [Concomitant]
  6. LORATIDINE [Concomitant]
  7. VITAMIN B (VITAMIN B) [Concomitant]
  8. LUNESTA (ESZOPICLONE) [Concomitant]
  9. CALCIUM  WITH VITAMIN D (CALCIIUM D3 ^STADA^) [Concomitant]
  10. MVI (MVI) [Concomitant]
  11. OMEPRAZOLE (OMEPRAZOLE) [Concomitant]
  12. CULTURELLE (CULTURELLE) [Concomitant]
  13. PRAVASTATIN  (PRAVASTATIN) [Concomitant]
  14. EFFEXOR (VENLAFAXINE HYDROCHLORIDE) [Concomitant]
  15. SYNTHROID (LEVOTHYROXINE SODIUM) [Concomitant]
  16. FEMARA (LETROZOLE) [Concomitant]

REACTIONS (2)
  - Haemoglobin decreased [None]
  - Platelet count decreased [None]
